FAERS Safety Report 9922284 (Version 1)
Quarter: 2014Q1

REPORT INFORMATION
  Report Type: Report from Study
  Country: NL (occurrence: NL)
  Receive Date: 20140225
  Receipt Date: 20140225
  Transmission Date: 20141002
  Serious: Yes (Death)
  Sender: FDA-Public Use
  Company Number: PHHY2014NL022690

PATIENT
  Sex: Male

DRUGS (4)
  1. ZOMETA [Suspect]
     Indication: PLASMA CELL MYELOMA
     Dosage: 4 MG PER 100 ML 1X PER 4 WEEKS
     Route: 042
  2. ZOMETA [Suspect]
     Dosage: 4 MG PER 100 ML 1X PER 4 WEEKS
     Route: 042
     Dates: start: 20121116
  3. ZOMETA [Suspect]
     Dosage: 4 MG PER 100 ML 1X PER 4 WEEKS
     Route: 042
     Dates: start: 20140114
  4. ZOMETA [Suspect]
     Dosage: 4 MG PER 100 ML 1X PER 4 WEEKS
     Route: 042
     Dates: start: 20140211

REACTIONS (1)
  - Cerebral infarction [Fatal]
